FAERS Safety Report 9169023 (Version 3)
Quarter: 2013Q2

REPORT INFORMATION
  Report Type: Spontaneous
  Country: TN (occurrence: TN)
  Receive Date: 20130318
  Receipt Date: 20130412
  Transmission Date: 20140414
  Serious: Yes (Hospitalization, Other)
  Sender: FDA-Public Use
  Company Number: DZ-BRISTOL-MYERS SQUIBB COMPANY-17461864

PATIENT
  Age: 55 Year
  Sex: Female

DRUGS (11)
  1. BARACLUDE [Suspect]
     Indication: CHRONIC HEPATITIS B
     Route: 048
  2. GLUCOPHAGE [Suspect]
  3. ASPEGIC [Suspect]
  4. COVERSYL [Suspect]
  5. LEVOTHYROXINE [Suspect]
  6. PURINOL [Suspect]
  7. CRESTOR [Suspect]
  8. LASILIX [Suspect]
  9. AMLOR [Suspect]
  10. SINTROM [Suspect]
  11. CARDENSIEL [Suspect]

REACTIONS (6)
  - Renal tubular necrosis [Unknown]
  - Renal failure acute [Unknown]
  - Portal vein thrombosis [Unknown]
  - Generalised oedema [Unknown]
  - Prothrombin level decreased [Unknown]
  - Coagulation factor V level decreased [Unknown]
